FAERS Safety Report 4848961-0 (Version None)
Quarter: 2005Q4

REPORT INFORMATION
  Report Type: 
  Country: None (occurrence: None)
  Receive Date: 20051122
  Receipt Date: 20050111
  Transmission Date: 20060501
  Serious: Yes (Other)
  Sender: FDA-Public Use
  Company Number: 2005-01-0003

PATIENT
  Age: 85 Year
  Sex: Male
  Weight: 73.0291 kg

DRUGS (1)
  1. PACLITAXEL [Suspect]
     Indication: NON-SMALL CELL LUNG CANCER
     Dosage: 150MG QW, INTRAVENOUS
     Route: 042
     Dates: start: 20040920, end: 20041208

REACTIONS (3)
  - EXTRAVASATION [None]
  - INFUSION SITE EXTRAVASATION [None]
  - OEDEMA [None]
